FAERS Safety Report 15332856 (Version 1)
Quarter: 2018Q3

REPORT INFORMATION
  Report Type: Other
  Country: FR (occurrence: FR)
  Receive Date: 20180830
  Receipt Date: 20180830
  Transmission Date: 20181010
  Serious: Yes (Other)
  Sender: FDA-Public Use
  Company Number: FR-APOTEX-2018AP019625

PATIENT
  Age: 42 Year
  Sex: Female

DRUGS (2)
  1. PAROXETINE TABLET [Suspect]
     Active Substance: PAROXETINE
     Indication: PRODUCT USED FOR UNKNOWN INDICATION
     Dosage: UNSPECIFIED
     Route: 048
  2. ALCOHOL. [Suspect]
     Active Substance: ALCOHOL
     Indication: PRODUCT USED FOR UNKNOWN INDICATION
     Dosage: UNSPECIFIED
     Route: 048

REACTIONS (2)
  - Drug abuse [Recovering/Resolving]
  - Victim of chemical submission [Recovering/Resolving]

NARRATIVE: CASE EVENT DATE: 201707
